FAERS Safety Report 5566188-4 (Version None)
Quarter: 2007Q4

REPORT INFORMATION
  Report Type: 
  Country: None (occurrence: None)
  Receive Date: 20071219
  Receipt Date: 20070731
  Transmission Date: 20080405
  Serious: No
  Sender: FDA-Public Use
  Company Number: US-KINGPHARMUSA00001-K200700963

PATIENT

DRUGS (1)
  1. APLISOL [Suspect]
     Dosage: .2 ML, UNK
     Dates: start: 20070701, end: 20070701

REACTIONS (2)
  - INCORRECT DOSE ADMINISTERED [None]
  - NO ADVERSE DRUG REACTION [None]
